FAERS Safety Report 20749923 (Version 1)
Quarter: 2022Q2

REPORT INFORMATION
  Report Type: Spontaneous
  Country: US (occurrence: US)
  Receive Date: 20220426
  Receipt Date: 20220426
  Transmission Date: 20220721
  Serious: Yes (Hospitalization, Other)
  Sender: FDA-Public Use
  Company Number: US-THERAPEUTICSMD-2022TMD00399

PATIENT
  Age: 71 Year
  Sex: Female
  Weight: 98.413 kg

DRUGS (7)
  1. IMVEXXY [Suspect]
     Active Substance: ESTRADIOL
     Indication: Urinary tract infection
     Dosage: 4 ?G, 1X/DAY
     Route: 067
     Dates: start: 202203
  2. IMVEXXY [Suspect]
     Active Substance: ESTRADIOL
     Indication: Atrophic vulvovaginitis
     Dosage: 4 ?G, 1X/DAY
     Route: 067
  3. UNSPECIFIED INGREDIENT [Concomitant]
     Active Substance: UNSPECIFIED INGREDIENT
  4. UNSPECIFIED INGREDIENT [Concomitant]
     Active Substance: UNSPECIFIED INGREDIENT
  5. UNSPECIFIED INGREDIENT [Concomitant]
     Active Substance: UNSPECIFIED INGREDIENT
  6. INSULIN NOS [Concomitant]
     Active Substance: INSULIN NOS
  7. LASIX [Concomitant]
     Active Substance: FUROSEMIDE

REACTIONS (6)
  - Syncope [Unknown]
  - Asthenia [Unknown]
  - Nausea [Unknown]
  - Cardiac disorder [Unknown]
  - Chronic kidney disease [Unknown]
  - Blood glucose decreased [Unknown]

NARRATIVE: CASE EVENT DATE: 20220405
